FAERS Safety Report 13006898 (Version 3)
Quarter: 2017Q1

REPORT INFORMATION
  Report Type: Spontaneous
  Country: IT (occurrence: IT)
  Receive Date: 20161207
  Receipt Date: 20170120
  Transmission Date: 20170428
  Serious: Yes (Life-Threatening, Other)
  Sender: FDA-Public Use
  Company Number: IT-PFIZER INC-2016567290

PATIENT
  Age: 2 Day
  Sex: Female

DRUGS (2)
  1. FENTANEST [Suspect]
     Active Substance: FENTANYL CITRATE
     Indication: ENDOTRACHEAL INTUBATION
     Dosage: 1 UG/KG, AS NEEDED
     Route: 042
     Dates: start: 20161201
  2. NALOXONE [Concomitant]
     Active Substance: NALOXONE
     Indication: ENDOTRACHEAL INTUBATION COMPLICATION
     Dosage: 1 MG/KG, AS NEEDED
     Route: 042
     Dates: start: 20161201

REACTIONS (5)
  - Bradycardia [Recovered/Resolved]
  - Neonatal hypoxia [Recovered/Resolved]
  - Expired product administered [Recovered/Resolved]
  - Product use issue [Recovered/Resolved]
  - Apnoea [Recovered/Resolved]

NARRATIVE: CASE EVENT DATE: 20161201
